FAERS Safety Report 9296888 (Version 1)
Quarter: 2013Q2

REPORT INFORMATION
  Report Type: Spontaneous
  Country: AT (occurrence: AT)
  Receive Date: 20130517
  Receipt Date: 20130517
  Transmission Date: 20140414
  Serious: Yes (Hospitalization)
  Sender: FDA-Public Use
  Company Number: AT-009507513-1305AUT008483

PATIENT
  Age: 63 Year
  Sex: Female

DRUGS (1)
  1. JANUMET 50 MG/850 MG FILMTABLETTEN [Suspect]
     Dosage: 14 DF, ONCE
     Route: 048
     Dates: start: 20120712, end: 20120712

REACTIONS (3)
  - Diarrhoea [Recovered/Resolved]
  - Abdominal pain [Recovered/Resolved]
  - Intentional overdose [Recovered/Resolved]
